FAERS Safety Report 7100085-8 (Version None)
Quarter: 2010Q4

REPORT INFORMATION
  Report Type: 
  Country: None (occurrence: None)
  Receive Date: 20101112
  Receipt Date: 20091027
  Transmission Date: 20110411
  Serious: No
  Sender: FDA-Public Use
  Company Number: A0813602A

PATIENT
  Age: 58 Year
  Sex: Female

DRUGS (4)
  1. COREG [Suspect]
     Route: 065
     Dates: end: 20090701
  2. HYDRALAZINE [Suspect]
     Route: 065
     Dates: end: 20090801
  3. SIMVASTATIN [Suspect]
     Dosage: 10MG PER DAY
     Route: 048
     Dates: start: 20090401
  4. HYTRIN [Suspect]
     Route: 065

REACTIONS (1)
  - OEDEMA PERIPHERAL [None]
